FAERS Safety Report 9015550 (Version 2)
Quarter: 2013Q1

REPORT INFORMATION
  Report Type: Spontaneous
  Country: FR (occurrence: FR)
  Receive Date: 20130116
  Receipt Date: 20130327
  Transmission Date: 20140127
  Serious: Yes (Life-Threatening)
  Sender: FDA-Public Use
  Company Number: FR-009507513-1301FRA003645

PATIENT
  Age: 0 Year
  Sex: Female
  Weight: 7.5 kg

DRUGS (4)
  1. SINEMET 100 MG / 10 MG COMPRIME SECABLE [Suspect]
     Indication: DYSTONIA
     Dosage: UNK
     Route: 048
     Dates: start: 20121211, end: 20121213
  2. RIVOTRIL [Suspect]
     Indication: DYSTONIA
     Dosage: UNK
     Route: 048
     Dates: start: 201208
  3. LAROXYL [Suspect]
     Indication: DYSTONIA
     Dosage: UNK
     Route: 048
     Dates: start: 20121207
  4. ARTANE [Suspect]
     Indication: DYSTONIA
     Dosage: UNK
     Route: 048
     Dates: start: 20120821

REACTIONS (2)
  - Serotonin syndrome [Recovered/Resolved]
  - Off label use [Unknown]
